FAERS Safety Report 6785555-4 (Version None)
Quarter: 2010Q2

REPORT INFORMATION
  Report Type: 
  Country: None (occurrence: None)
  Receive Date: 20100623
  Receipt Date: 20100615
  Transmission Date: 20101027
  Serious: Yes (Other)
  Sender: FDA-Public Use
  Company Number: US-JNJFOC-20100605520

PATIENT
  Sex: Female
  Weight: 74.84 kg

DRUGS (3)
  1. DURAGESIC-100 [Suspect]
     Indication: BACK PAIN
     Route: 062
  2. CORGARD [Concomitant]
     Indication: BLOOD PRESSURE
     Route: 048
  3. LASIX [Concomitant]
     Indication: FLUID RETENTION
     Route: 048

REACTIONS (2)
  - OXYGEN SATURATION DECREASED [None]
  - PNEUMONIA [None]
